FAERS Safety Report 4315036-9 (Version None)
Quarter: 2004Q1

REPORT INFORMATION
  Report Type: 
  Country: None (occurrence: None)
  Receive Date: 20040309
  Receipt Date: 20040301
  Transmission Date: 20041129
  Serious: Yes (Other)
  Sender: FDA-Public Use
  Company Number: FR_040303677

PATIENT
  Age: 65 Year
  Sex: Female

DRUGS (1)
  1. OPTRUMA (RALOXIFENE HYDROCHLORIDE) [Suspect]
     Dosage: 60 MG/1 DAY

REACTIONS (2)
  - PHLEBOTHROMBOSIS [None]
  - RETINAL VEIN THROMBOSIS [None]
